FAERS Safety Report 22263624 (Version 2)
Quarter: 2023Q2

REPORT INFORMATION
  Report Type: Spontaneous
  Country: US (occurrence: US)
  Receive Date: 20230428
  Receipt Date: 20230509
  Transmission Date: 20230722
  Serious: Yes (Hospitalization, Other)
  Sender: FDA-Public Use
  Company Number: US-Accord-355398

PATIENT
  Age: 7 Decade
  Sex: Female
  Weight: 110 kg

DRUGS (10)
  1. HYDROXYCHLOROQUINE [Suspect]
     Active Substance: HYDROXYCHLOROQUINE
     Indication: Rheumatoid arthritis
  2. LEFLUNOMIDE [Suspect]
     Active Substance: LEFLUNOMIDE
     Indication: Rheumatoid arthritis
  3. PREDNISONE [Suspect]
     Active Substance: PREDNISONE
     Indication: Rheumatoid arthritis
  4. RITUXIMAB [Suspect]
     Active Substance: RITUXIMAB
     Indication: Rheumatoid arthritis
     Dosage: EVERY 4 MONTHS
     Route: 042
  5. CARVEDILOL [Concomitant]
     Active Substance: CARVEDILOL
     Indication: Hypertension
  6. SACUBITRIL\VALSARTAN [Concomitant]
     Active Substance: SACUBITRIL\VALSARTAN
     Indication: Cardiac failure
     Dosage: 24-26 MG TWO TIMES PER DAY
  7. SPIRONOLACTONE [Concomitant]
     Active Substance: SPIRONOLACTONE
     Indication: Hypertension
  8. DAPAGLIFLOZIN [Concomitant]
     Active Substance: DAPAGLIFLOZIN
     Indication: Type 2 diabetes mellitus
  9. BUMETANIDE [Concomitant]
     Active Substance: BUMETANIDE
  10. ASPIRIN [Concomitant]
     Active Substance: ASPIRIN

REACTIONS (12)
  - Cardiomyopathy [Unknown]
  - Pulmonary oedema [Unknown]
  - Pulmonary hypertension [Recovering/Resolving]
  - Pulmonary arterial hypertension [Recovering/Resolving]
  - Cardiac failure [Recovering/Resolving]
  - Loss of personal independence in daily activities [Recovering/Resolving]
  - Hypokinesia [Recovering/Resolving]
  - Mitral valve incompetence [Recovering/Resolving]
  - Right ventricular dilatation [Recovering/Resolving]
  - Venous thrombosis [Unknown]
  - Bundle branch block left [Recovering/Resolving]
  - Left ventricular hypertrophy [Recovering/Resolving]
